FAERS Safety Report 24161710 (Version 1)
Quarter: 2024Q3

REPORT INFORMATION
  Report Type: Report from Study
  Country: CA (occurrence: CA)
  Receive Date: 20240801
  Receipt Date: 20240801
  Transmission Date: 20241017
  Serious: Yes (Other)
  Sender: JOHNSON AND JOHNSON
  Company Number: CA-JNJFOC-20240623435

PATIENT
  Age: 40 Year
  Sex: Male

DRUGS (2)
  1. REMICADE [Suspect]
     Active Substance: INFLIXIMAB
     Indication: Crohn^s disease
     Route: 041
     Dates: start: 20160219
  2. REMICADE [Suspect]
     Active Substance: INFLIXIMAB
     Dosage: ON 08-JUN-2024, THE PATIENT RECEIVED 55TH INFLIXIMAB, RECOMBINANT INFUSION AT DOSE OF 600 MG.
     Route: 041
     Dates: start: 20160220

REACTIONS (2)
  - Cyst [Recovered/Resolved]
  - Furuncle [Recovered/Resolved]

NARRATIVE: CASE EVENT DATE: 20240601
